FAERS Safety Report 9402918 (Version 1)
Quarter: 2013Q3

REPORT INFORMATION
  Report Type: Spontaneous
  Country: US (occurrence: US)
  Receive Date: 20130716
  Receipt Date: 20130716
  Transmission Date: 20140515
  Serious: Yes (Hospitalization, Other)
  Sender: FDA-Public Use
  Company Number: US-TEVA-410589USA

PATIENT
  Sex: Male

DRUGS (5)
  1. ACTIQ [Suspect]
     Indication: BREAKTHROUGH PAIN
     Route: 048
  2. ROXANOL [Concomitant]
     Indication: PAIN
     Dosage: 10-20MG Q4HR
  3. COMPAZINE [Concomitant]
     Indication: NAUSEA
     Dosage: Q6HR
     Route: 048
  4. COMPAZINE [Concomitant]
     Indication: VOMITING
  5. NEURONTIN [Concomitant]
     Dosage: 300 MILLIGRAM DAILY; QHS
     Route: 048

REACTIONS (1)
  - Pharyngeal haemorrhage [Unknown]
